FAERS Safety Report 24782345 (Version 2)
Quarter: 2025Q1

REPORT INFORMATION
  Report Type: Spontaneous
  Country: FR (occurrence: FR)
  Receive Date: 20241227
  Receipt Date: 20250326
  Transmission Date: 20250409
  Serious: Yes (Other)
  Sender: CHEPLAPHARM
  Company Number: FR-CHEPLA-2024016029

PATIENT
  Sex: Female

DRUGS (4)
  1. HYDROXYUREA [Suspect]
     Active Substance: HYDROXYUREA
     Indication: Essential thrombocythaemia
  2. ANAGRELIDE [Suspect]
     Active Substance: ANAGRELIDE
     Indication: Essential thrombocythaemia
  3. PEGASYS [Suspect]
     Active Substance: PEGINTERFERON ALFA-2A
     Indication: Essential thrombocythaemia
  4. ELIQUIS [Suspect]
     Active Substance: APIXABAN
     Indication: Essential thrombocythaemia

REACTIONS (4)
  - Deep vein thrombosis [Unknown]
  - Drug intolerance [Unknown]
  - Drug ineffective [Unknown]
  - Dyspepsia [Unknown]
